FAERS Safety Report 17601783 (Version 1)
Quarter: 2020Q1

REPORT INFORMATION
  Report Type: Spontaneous
  Country: FR (occurrence: FR)
  Receive Date: 20200331
  Receipt Date: 20200331
  Transmission Date: 20200409
  Serious: Yes (Death)
  Sender: FDA-Public Use
  Company Number: FR-SUN PHARMACEUTICAL INDUSTRIES LTD-2020RR-242214

PATIENT
  Age: 74 Year
  Sex: Male
  Weight: 80.5 kg

DRUGS (7)
  1. LEVOFOLINATE CALCIQUE [Suspect]
     Active Substance: LEVOLEUCOVORIN CALCIUM
     Indication: PELVIC NEOPLASM
     Dosage: CYCLICAL
     Route: 042
     Dates: start: 20191120, end: 20200205
  2. OXALIPLATIN. [Suspect]
     Active Substance: OXALIPLATIN
     Indication: PELVIC NEOPLASM
     Dosage: CYCLICAL
     Route: 041
     Dates: start: 20191120, end: 20200123
  3. FLUOROURACILE [Suspect]
     Active Substance: FLUOROURACIL
     Indication: PELVIC NEOPLASM
     Dosage: CYCLICAL
     Route: 041
     Dates: start: 20191120, end: 20200207
  4. BACTRIM [Suspect]
     Active Substance: SULFAMETHOXAZOLE\TRIMETHOPRIM
     Indication: URINARY TRACT INFECTION
     Dosage: INCONNUE ()
     Route: 048
     Dates: start: 20200207, end: 20200210
  5. VECTIBIX [Suspect]
     Active Substance: PANITUMUMAB
     Indication: PELVIC NEOPLASM
     Dosage: CYCLICAL
     Route: 041
     Dates: start: 20191225, end: 20200205
  6. HYDROCHLOROTHIAZIDE. [Suspect]
     Active Substance: HYDROCHLOROTHIAZIDE
     Indication: HYPERTENSION
     Dosage: 12.5 MILLIGRAM, DAILY
     Route: 048
  7. VALSARTAN. [Suspect]
     Active Substance: VALSARTAN
     Indication: HYPERTENSION
     Dosage: 160 MILLIGRAM, DAILY
     Route: 048

REACTIONS (1)
  - Interstitial lung disease [Fatal]

NARRATIVE: CASE EVENT DATE: 20200210
